FAERS Safety Report 9920864 (Version 2)
Quarter: 2014Q2

REPORT INFORMATION
  Report Type: Report from Study
  Country: DE (occurrence: DE)
  Receive Date: 20140225
  Receipt Date: 20140520
  Transmission Date: 20141212
  Serious: No
  Sender: FDA-Public Use
  Company Number: PHHO2014DE002451

PATIENT
  Sex: 0

DRUGS (8)
  1. BLINDED LAF237 [Suspect]
     Indication: TYPE 2 DIABETES MELLITUS
     Dosage: CODE NOT BROKEN
     Route: 048
     Dates: start: 20130214
  2. BLINDED NO TREATMENT RECEIVED [Suspect]
     Indication: TYPE 2 DIABETES MELLITUS
     Dosage: CODE NOT BROKEN
     Route: 048
     Dates: start: 20130214
  3. BLINDED PLACEBO [Suspect]
     Indication: TYPE 2 DIABETES MELLITUS
     Dosage: CODE NOT BROKEN
     Route: 048
     Dates: start: 20130214
  4. COMPARATOR METFORMIN [Suspect]
     Indication: TYPE 2 DIABETES MELLITUS
     Dosage: 1500 MG, UNK
     Route: 048
     Dates: start: 20130131
  5. RAMIPRIL [Suspect]
     Indication: HYPERTENSION
     Dosage: 5/25 MG, UNK
     Route: 048
     Dates: start: 20131114, end: 20131124
  6. ASA [Concomitant]
     Indication: CORONARY ARTERY DISEASE
     Dosage: 100 MG, UNK
     Route: 048
     Dates: start: 20120131
  7. SIMVASTATIN [Concomitant]
     Indication: HYPERLIPIDAEMIA
     Dosage: 20 MG, UNK
     Route: 048
     Dates: start: 20130127
  8. OLMETEC [Concomitant]
     Indication: HYPERTENSION
     Dosage: 40 MG, UNK
     Route: 048
     Dates: start: 20130214, end: 20131124

REACTIONS (1)
  - Flushing [Recovered/Resolved]
